FAERS Safety Report 24955512 (Version 2)
Quarter: 2025Q1

REPORT INFORMATION
  Report Type: Spontaneous
  Country: JP (occurrence: JP)
  Receive Date: 20250211
  Receipt Date: 20250331
  Transmission Date: 20250408
  Serious: Yes (Other)
  Sender: AMGEN
  Company Number: JP-AMGEN-JPNSP2024248958

PATIENT
  Sex: Male

DRUGS (3)
  1. BLINCYTO [Suspect]
     Active Substance: BLINATUMOMAB
     Indication: B precursor type acute leukaemia
     Route: 040
     Dates: start: 20241216, end: 20241216
  2. BLINCYTO [Suspect]
     Active Substance: BLINATUMOMAB
     Route: 040
     Dates: start: 20241218
  3. BLINCYTO [Suspect]
     Active Substance: BLINATUMOMAB
     Route: 040

REACTIONS (3)
  - Cholangitis [Recovered/Resolved]
  - Pyrexia [Not Recovered/Not Resolved]
  - Weight decreased [Unknown]

NARRATIVE: CASE EVENT DATE: 20241216
